FAERS Safety Report 9444624 (Version 1)
Quarter: 2013Q3

REPORT INFORMATION
  Report Type: Spontaneous
  Country: US (occurrence: None)
  Receive Date: 20130806
  Receipt Date: 20130806
  Transmission Date: 20140515
  Serious: No
  Sender: FDA-Public Use
  Company Number: None

PATIENT
  Age: 64 None
  Sex: Female

DRUGS (11)
  1. SEROQUEL XR [Suspect]
     Indication: BIPOLAR DISORDER
     Route: 048
     Dates: start: 20130703
  2. SEROQUEL XR [Suspect]
     Indication: ANXIETY
     Route: 048
     Dates: start: 20130703
  3. SIMVASTATIN [Concomitant]
  4. KLONOPIN [Concomitant]
  5. PANTOPRAZOLE [Concomitant]
  6. LISINOPRIL [Concomitant]
  7. MULTIVITAMINS [Concomitant]
  8. CALCIUM [Concomitant]
  9. VITAMIN B12 [Concomitant]
  10. VIT B6 [Concomitant]
  11. GLUCOSAMINE WITH CONDROITIN [Concomitant]

REACTIONS (5)
  - Dizziness [None]
  - Vision blurred [None]
  - Syncope [None]
  - Orthostatic hypotension [None]
  - Syncope [None]
